FAERS Safety Report 9152851 (Version 2)
Quarter: 2013Q2

REPORT INFORMATION
  Report Type: Report from Study
  Country: TR (occurrence: TR)
  Receive Date: 20130309
  Receipt Date: 20130427
  Transmission Date: 20140414
  Serious: Yes (Hospitalization)
  Sender: FDA-Public Use
  Company Number: TR-US-EMD SERONO, INC.-7197226

PATIENT
  Sex: Female
  Weight: 85 kg

DRUGS (2)
  1. REBIF [Suspect]
     Indication: MULTIPLE SCLEROSIS
     Route: 058
     Dates: start: 201109, end: 20130227
  2. LYRICA [Suspect]
     Indication: NEURALGIA
     Route: 048
     Dates: start: 2007

REACTIONS (4)
  - Urinary tract infection [Unknown]
  - Multiple sclerosis relapse [Recovered/Resolved]
  - Blood glucose increased [Unknown]
  - Pyrexia [Unknown]
